FAERS Safety Report 13102252 (Version 2)
Quarter: 2017Q1

REPORT INFORMATION
  Report Type: Spontaneous
  Country: US (occurrence: US)
  Receive Date: 20170110
  Receipt Date: 20170227
  Transmission Date: 20170428
  Serious: Yes (Disabling)
  Sender: FDA-Public Use
  Company Number: US-009507513-1701USA001848

PATIENT
  Sex: Female

DRUGS (3)
  1. GABAPENTIN. [Concomitant]
     Active Substance: GABAPENTIN
     Dosage: UNK
  2. PLAVIX [Concomitant]
     Active Substance: CLOPIDOGREL BISULFATE
     Dosage: UNK
  3. ZETIA [Suspect]
     Active Substance: EZETIMIBE
     Indication: BLOOD CHOLESTEROL ABNORMAL
     Dosage: 10 MG (TABLET) ONCE A DAY
     Route: 048
     Dates: start: 201607, end: 20161107

REACTIONS (8)
  - Cough [Unknown]
  - Joint dislocation [Unknown]
  - Hot flush [Unknown]
  - Arthralgia [Recovering/Resolving]
  - Diarrhoea [Unknown]
  - Balance disorder [Recovered/Resolved]
  - Gait disturbance [Recovering/Resolving]
  - Myalgia [Recovering/Resolving]
